FAERS Safety Report 6403703-2 (Version None)
Quarter: 2009Q4

REPORT INFORMATION
  Report Type: 
  Country: None (occurrence: None)
  Receive Date: 20091016
  Receipt Date: 20091008
  Transmission Date: 20100525
  Serious: Yes (Hospitalization)
  Sender: FDA-Public Use
  Company Number: IT-BAYER-200934615GPV

PATIENT
  Age: 60 Year
  Sex: Male
  Weight: 89 kg

DRUGS (8)
  1. SORAFENIB [Suspect]
     Indication: HEPATIC NEOPLASM MALIGNANT
     Dosage: TOTAL DAILY DOSE: 800 MG
     Route: 048
     Dates: start: 20090827, end: 20091003
  2. DOXORUBICIN HCL [Suspect]
     Indication: HEPATIC NEOPLASM MALIGNANT
  3. LACTULOSE [Concomitant]
     Indication: HEPATIC CIRRHOSIS
     Route: 048
     Dates: start: 20070101
  4. TRIATEC HCT [Concomitant]
     Indication: HYPERTENSION
     Route: 048
     Dates: start: 20000101
  5. INDERAL [Concomitant]
     Indication: HYPERTENSION
     Route: 048
     Dates: start: 20070401
  6. PANTOPAN [Concomitant]
     Indication: GASTRITIS PROPHYLAXIS
     Route: 048
     Dates: start: 20070101
  7. HUMALOG [Concomitant]
     Indication: DIABETES MELLITUS
     Route: 058
     Dates: start: 20040422
  8. LANTUS [Concomitant]
     Indication: DIABETES MELLITUS
     Route: 058
     Dates: start: 20070101

REACTIONS (1)
  - ENCEPHALOPATHY [None]
